FAERS Safety Report 9433702 (Version 4)
Quarter: 2013Q4

REPORT INFORMATION
  Report Type: Spontaneous
  Country: US (occurrence: US)
  Receive Date: 20130731
  Receipt Date: 20131119
  Transmission Date: 20140711
  Serious: Yes (Other)
  Sender: FDA-Public Use
  Company Number: US-UCBSA-092893

PATIENT
  Sex: Male

DRUGS (3)
  1. CIMZIA [Suspect]
     Indication: CROHN^S DISEASE
     Dosage: FOR OVER 2 YEARS. DOSE-400
     Route: 058
     Dates: end: 20130710
  2. 6-MP [Concomitant]
  3. AZATHIOPRINE [Concomitant]

REACTIONS (1)
  - Basal cell carcinoma [Unknown]
